FAERS Safety Report 6067083-7 (Version None)
Quarter: 2009Q1

REPORT INFORMATION
  Report Type: 
  Country: None (occurrence: None)
  Receive Date: 20090205
  Receipt Date: 20090128
  Transmission Date: 20090719
  Serious: Yes (Death, Other)
  Sender: FDA-Public Use
  Company Number: US-MERCK-0801USA01991

PATIENT
  Age: 51 Year
  Sex: Female
  Weight: 56 kg

DRUGS (3)
  1. FOSAMAX [Suspect]
     Indication: OSTEOPENIA
     Route: 048
     Dates: start: 20011001, end: 20060101
  2. PREMPRO [Concomitant]
     Indication: HORMONE REPLACEMENT THERAPY
     Route: 048
     Dates: start: 20011019, end: 20060517
  3. ESTROGENS (UNSPECIFIED) [Concomitant]
     Route: 065
     Dates: start: 19990101

REACTIONS (20)
  - ACCIDENTAL DEATH [None]
  - BREAST CALCIFICATIONS [None]
  - CONTUSION [None]
  - ERYTHEMA MULTIFORME [None]
  - FALL [None]
  - HAEMOPTYSIS [None]
  - HERPES VIRUS INFECTION [None]
  - HUMERUS FRACTURE [None]
  - HYPOTHYROIDISM [None]
  - INFECTION [None]
  - JOINT SPRAIN [None]
  - MUSCLE STRAIN [None]
  - MUSCULOSKELETAL CHEST PAIN [None]
  - OSTEOMYELITIS [None]
  - OSTEONECROSIS [None]
  - RESPIRATORY FUME INHALATION DISORDER [None]
  - ROTATOR CUFF SYNDROME [None]
  - THROMBOCYTOPENIA [None]
  - VIRAL INFECTION [None]
  - VOMITING [None]
